FAERS Safety Report 20572324 (Version 2)
Quarter: 2023Q1

REPORT INFORMATION
  Report Type: Spontaneous
  Country: US (occurrence: US)
  Receive Date: 20220309
  Receipt Date: 20230314
  Transmission Date: 20230417
  Serious: Yes (Disabling, Other)
  Sender: FDA-Public Use
  Company Number: US-ORGANON-O2203USA000724

PATIENT
  Sex: Female

DRUGS (1)
  1. SINGULAIR [Suspect]
     Active Substance: MONTELUKAST SODIUM
     Dosage: UNK
     Route: 048
     Dates: start: 2010, end: 2019

REACTIONS (11)
  - Neuropsychiatric symptoms [Not Recovered/Not Resolved]
  - Confusional state [Not Recovered/Not Resolved]
  - Panic attack [Not Recovered/Not Resolved]
  - Self-injurious ideation [Unknown]
  - Anxiety [Not Recovered/Not Resolved]
  - Depression [Not Recovered/Not Resolved]
  - Tremor [Not Recovered/Not Resolved]
  - Suicidal ideation [Not Recovered/Not Resolved]
  - Migraine [Unknown]
  - Weight increased [Unknown]
  - Memory impairment [Unknown]
